FAERS Safety Report 24702721 (Version 2)
Quarter: 2025Q1

REPORT INFORMATION
  Report Type: Spontaneous
  Country: JP (occurrence: JP)
  Receive Date: 20241205
  Receipt Date: 20250114
  Transmission Date: 20250409
  Serious: Yes (Life-Threatening, Other)
  Sender: BRACCO
  Company Number: JP-BAYER-2024A168520

PATIENT
  Age: 76 Year
  Sex: Male

DRUGS (2)
  1. IOPAMIRON [Suspect]
     Active Substance: IOPAMIDOL
     Indication: Computerised tomogram
     Route: 042
  2. IOPAMIRON [Suspect]
     Active Substance: IOPAMIDOL
     Indication: Computerised tomogram heart
     Route: 042
     Dates: start: 20230801, end: 20230801

REACTIONS (5)
  - Kounis syndrome [Recovered/Resolved]
  - Shock [Recovered/Resolved]
  - Electrocardiogram ST segment elevation [Recovered/Resolved]
  - Ventricular fibrillation [Recovered/Resolved]
  - Rash [Recovered/Resolved]

NARRATIVE: CASE EVENT DATE: 20230514
